FAERS Safety Report 24711888 (Version 1)
Quarter: 2024Q4

REPORT INFORMATION
  Report Type: Spontaneous
  Country: US (occurrence: None)
  Receive Date: 20241209
  Receipt Date: 20241209
  Transmission Date: 20250115
  Serious: Yes (Hospitalization)
  Sender: Public
  Company Number: None

PATIENT
  Sex: Female

DRUGS (4)
  1. MYFORTIC [Suspect]
     Active Substance: MYCOPHENOLATE SODIUM
     Indication: Renal transplant
     Dosage: FREQ: TAKE 2 TABLETS (720 MG TOTAL) BY MOUTH IN THE MORNING, AND 1 TABLET )360 MG TOTAL) EVERY EVEN
     Route: 048
  2. MYFORTIC [Suspect]
     Active Substance: MYCOPHENOLATE SODIUM
     Dosage: OTHER FREQUENCY : EVERY EVENING;?
     Route: 048
  3. CALCIUM CIT/TAB VIT D [Concomitant]
  4. PROGRAF [Concomitant]
     Active Substance: TACROLIMUS

REACTIONS (1)
  - Surgery [None]
